FAERS Safety Report 22603649 (Version 1)
Quarter: 2023Q2

REPORT INFORMATION
  Report Type: Spontaneous
  Country: US (occurrence: US)
  Receive Date: 20230615
  Receipt Date: 20230615
  Transmission Date: 20230722
  Serious: Yes (Other)
  Sender: FDA-Public Use
  Company Number: US-GLAND PHARMA LIMITED-2023US002182

PATIENT

DRUGS (3)
  1. MITOMYCIN [Suspect]
     Active Substance: MITOMYCIN
     Indication: Optic neuritis
     Dosage: 0.2 ML
     Route: 031
  2. LIDOCAINE [Suspect]
     Active Substance: LIDOCAINE
     Indication: Optic neuritis
     Dosage: 2 %
     Route: 065
  3. MARCAINE [Suspect]
     Active Substance: BUPIVACAINE HYDROCHLORIDE
     Indication: Optic neuritis
     Dosage: 0.75 %
     Route: 065

REACTIONS (2)
  - Retinal toxicity [Not Recovered/Not Resolved]
  - Off label use [Unknown]
